FAERS Safety Report 8935999 (Version 1)
Quarter: 2012Q4

REPORT INFORMATION
  Report Type: 
  Country: US (occurrence: US)
  Receive Date: 20121130
  Receipt Date: 20121130
  Transmission Date: 20130627
  Serious: No
  Sender: FDA-Public Use
  Company Number: US-ABBOTT-12P-163-0986178-00

PATIENT
  Sex: Male

DRUGS (5)
  1. ANDROGEL [Suspect]
     Indication: BLOOD TESTOSTERONE DECREASED
     Dosage: 2 pumps
     Route: 061
     Dates: start: 201206, end: 201206
  2. ANDROGEL [Suspect]
     Route: 061
     Dates: start: 20120801, end: 201208
  3. TOPROL XL [Concomitant]
     Indication: HYPERTENSION
  4. MAVIK [Concomitant]
     Indication: HYPERTENSION
  5. SYNTHROID [Concomitant]
     Indication: HYPOTHYROIDISM

REACTIONS (4)
  - Arthritis [Recovered/Resolved]
  - Drug dose omission [Recovered/Resolved]
  - Arthritis [Recovered/Resolved]
  - Drug dose omission [Recovered/Resolved]
